FAERS Safety Report 5583260-3 (Version None)
Quarter: 2008Q1

REPORT INFORMATION
  Report Type: 
  Country: None (occurrence: None)
  Receive Date: 20080107
  Receipt Date: 20071227
  Transmission Date: 20080703
  Serious: Yes (Hospitalization)
  Sender: FDA-Public Use
  Company Number: US-ELI_LILLY_AND_COMPANY-US200712004889

PATIENT
  Age: 40 Year
  Sex: Female

DRUGS (2)
  1. CYMBALTA [Suspect]
     Indication: PAIN
     Dosage: 40 MG, DAILY (1/D)
     Dates: start: 20071001
  2. CYMBALTA [Suspect]
     Dosage: 1 D/F, UNK

REACTIONS (2)
  - HAEMATEMESIS [None]
  - NAUSEA [None]
